FAERS Safety Report 23294841 (Version 1)
Quarter: 2023Q4

REPORT INFORMATION
  Report Type: Spontaneous
  Country: US (occurrence: US)
  Receive Date: 20231213
  Receipt Date: 20231213
  Transmission Date: 20240110
  Serious: No
  Sender: FDA-Public Use
  Company Number: US-INTERCEPT-PM2023001765

PATIENT
  Age: 64 Year
  Sex: Male

DRUGS (2)
  1. OCALIVA [Suspect]
     Active Substance: OBETICHOLIC ACID
     Indication: Product used for unknown indication
     Route: 065
  2. ARCALYST [Concomitant]
     Active Substance: RILONACEPT

REACTIONS (1)
  - Nasopharyngitis [Unknown]
